FAERS Safety Report 7680833-9 (Version None)
Quarter: 2011Q3

REPORT INFORMATION
  Report Type: 
  Country: None (occurrence: None)
  Receive Date: 20110812
  Receipt Date: 20110808
  Transmission Date: 20111222
  Serious: Yes (Life-Threatening)
  Sender: FDA-Public Use
  Company Number: GB-MERCK-1108GBR00047

PATIENT
  Age: 64 Year
  Sex: Male
  Weight: 89 kg

DRUGS (4)
  1. SILDENAFIL CITRATE [Concomitant]
     Route: 065
     Dates: start: 20090101
  2. SINEMET [Suspect]
     Indication: PARKINSON'S DISEASE
     Route: 048
     Dates: start: 20060101
  3. IBUPROFEN [Concomitant]
     Route: 065
     Dates: start: 20080101
  4. PROCHLORPERAZINE [Suspect]
     Indication: MOTION SICKNESS
     Route: 048
     Dates: start: 20110524, end: 20110530

REACTIONS (2)
  - DRUG INTERACTION [None]
  - SUICIDAL IDEATION [None]
